FAERS Safety Report 9185564 (Version 1)
Quarter: 2013Q1

REPORT INFORMATION
  Report Type: Spontaneous
  Country: CA (occurrence: CA)
  Receive Date: 20130325
  Receipt Date: 20130325
  Transmission Date: 20140127
  Serious: Yes (Other)
  Sender: FDA-Public Use
  Company Number: PHHY2013CA022995

PATIENT
  Age: 62 Year
  Sex: Female

DRUGS (1)
  1. ACLASTA [Suspect]
     Indication: OSTEOPOROSIS
     Dosage: UNK
     Route: 042
     Dates: start: 20130304

REACTIONS (6)
  - Multiple sclerosis [Unknown]
  - Neuralgia [Unknown]
  - Asthenia [Unknown]
  - Dizziness [Unknown]
  - Dehydration [Unknown]
  - Influenza like illness [Unknown]
